FAERS Safety Report 8963743 (Version 1)
Quarter: 2012Q4

REPORT INFORMATION
  Report Type: 
  Country: SE (occurrence: SE)
  Receive Date: 20121214
  Receipt Date: 20121214
  Transmission Date: 20130627
  Serious: Yes (Hospitalization)
  Sender: FDA-Public Use
  Company Number: SE-MERCK-1212SWE002557

PATIENT
  Age: 79 Year
  Sex: Male

DRUGS (8)
  1. ZOCORD 20 MG [Suspect]
     Dosage: 20 mg, qd
     Route: 048
     Dates: start: 2000, end: 20110603
  2. GREPID [Concomitant]
     Dosage: UNK, UNK
     Route: 048
  3. DELTISON [Concomitant]
     Route: 048
  4. LEUKERAN [Concomitant]
     Route: 048
  5. SELOKEN ZOC [Concomitant]
     Dosage: Prolonged-release tablet, 50 mg oral
     Route: 048
  6. TROMBYL [Concomitant]
     Dosage: UNK , UNK
     Route: 048
  7. ISOSORBIDE MONONITRATE [Concomitant]
  8. NORVASC [Concomitant]

REACTIONS (8)
  - Cold sweat [Not Recovered/Not Resolved]
  - Muscular weakness [Not Recovered/Not Resolved]
  - Heart rate irregular [Not Recovered/Not Resolved]
  - Tremor [Not Recovered/Not Resolved]
  - Nausea [Not Recovered/Not Resolved]
  - Headache [Not Recovered/Not Resolved]
  - Arthralgia [Not Recovered/Not Resolved]
  - Myalgia [Not Recovered/Not Resolved]
